FAERS Safety Report 14854107 (Version 7)
Quarter: 2018Q3

REPORT INFORMATION
  Report Type: Report from Study
  Country: JP (occurrence: JP)
  Receive Date: 20180507
  Receipt Date: 20180829
  Transmission Date: 20181010
  Serious: Yes (Hospitalization)
  Sender: FDA-Public Use
  Company Number: JP-PFIZER INC-2018176478

PATIENT
  Age: 75 Year
  Sex: Female
  Weight: 46 kg

DRUGS (37)
  1. METHOCARBAMOL. [Concomitant]
     Active Substance: METHOCARBAMOL
     Indication: CHRONIC GASTRITIS
     Dosage: 1 G, 3X/DAY
     Route: 048
  2. CRIZOTINIB [Suspect]
     Active Substance: CRIZOTINIB
     Indication: NON-SMALL CELL LUNG CANCER
     Dosage: 250 MG, 2X/DAY
     Dates: start: 20131205, end: 20140129
  3. CRIZOTINIB [Suspect]
     Active Substance: CRIZOTINIB
     Dosage: 200 MG, 2X/DAY
     Dates: start: 20140213, end: 20140814
  4. MONOAMMONIUM GLYCYRRHIZINATE [Concomitant]
     Active Substance: AMMONIUM GLYCYRRHIZATE
     Indication: ALANINE AMINOTRANSFERASE INCREASED
  5. CAFFEINE HYDRATE [Concomitant]
     Indication: CHRONIC GASTRITIS
     Dosage: UNK, 3X/DAY
     Route: 048
  6. LAC?B [Concomitant]
     Active Substance: BIFIDOBACTERIUM SPP.
     Dosage: 1 G, 3X/DAY
     Route: 048
     Dates: start: 20150625, end: 20150627
  7. DAIOKANZOTO [Concomitant]
     Active Substance: LICORICE ROOT EXTRACT\RHUBARB
     Indication: CONSTIPATION
     Dosage: 2.5 G, AS NEEDED
     Route: 048
     Dates: start: 20160208
  8. LAMOTRIGINE. [Concomitant]
     Active Substance: LAMOTRIGINE
     Dosage: 25 MG, 3X/DAY
     Route: 048
     Dates: start: 20170920
  9. BETAMETHASONE SODIUM PHOSPHATE [Concomitant]
     Active Substance: BETAMETHASONE SODIUM PHOSPHATE
     Indication: TRIGEMINAL NEURALGIA
     Dosage: 2.5 MG, AS NEEDED
     Route: 061
     Dates: start: 20170130
  10. BETAMETHASONE VALERATE. [Concomitant]
     Active Substance: BETAMETHASONE VALERATE
     Dosage: PROPER QUANTITY AS NEEDED
     Route: 061
     Dates: start: 20171031
  11. GOREISAN /08015901/ [Concomitant]
     Active Substance: HERBALS
     Indication: CONSTIPATION
     Dosage: 3 G, 2X/DAY
     Route: 048
     Dates: start: 20170206
  12. BROTIZOLAM [Concomitant]
     Active Substance: BROTIZOLAM
     Indication: INSOMNIA
     Dosage: 0.25 MG, AS NEEDED
     Route: 048
     Dates: start: 20130604
  13. ESOMEPRAZOLE MAGNESIUM HYDRATE [Concomitant]
     Active Substance: ESOMEPRAZOLE MAGNESIUM
     Indication: GASTROOESOPHAGEAL REFLUX DISEASE
     Dosage: 10 MG, 1X/DAY
     Route: 048
     Dates: start: 20140122, end: 20140205
  14. ACICLOVIR [Concomitant]
     Active Substance: ACYCLOVIR
     Dosage: 1 (UNSPECIFIED UNIT OF MEASURE), AS NEEDED
     Route: 062
     Dates: start: 20140805
  15. KETOPROFEN. [Concomitant]
     Active Substance: KETOPROFEN
     Dosage: 20 MG, AS NEEDED
     Route: 061
     Dates: start: 20170910
  16. CRIZOTINIB [Suspect]
     Active Substance: CRIZOTINIB
     Dosage: DOSE REDUCED
     Dates: start: 20140129, end: 20140206
  17. CRIZOTINIB [Suspect]
     Active Substance: CRIZOTINIB
     Dosage: UNK
     Dates: start: 20160823
  18. DIFLUPREDNATE [Concomitant]
     Active Substance: DIFLUPREDNATE
     Indication: GLAUCOMA
     Dosage: PROPER QUANTITY INSTILLATION , 3X/DAY
     Route: 041
  19. VIDARABINE [Concomitant]
     Active Substance: VIDARABINE
     Indication: HERPES SIMPLEX
     Dosage: UNK, PROPER QUANTITY AS NEEDED
     Route: 061
     Dates: start: 20180319, end: 20180327
  20. FUROSEMIDE. [Concomitant]
     Active Substance: FUROSEMIDE
     Indication: OEDEMA PERIPHERAL
     Dosage: 20 MG, 1X/DAY
     Route: 048
     Dates: start: 20180403, end: 20180523
  21. ESOMEPRAZOLE MAGNESIUM HYDRATE [Concomitant]
     Active Substance: ESOMEPRAZOLE MAGNESIUM
     Indication: CHRONIC GASTRITIS
     Dosage: 20 MG, 1X/DAY
     Route: 048
     Dates: start: 20131226, end: 20140121
  22. ESOMEPRAZOLE MAGNESIUM HYDRATE [Concomitant]
     Active Substance: ESOMEPRAZOLE MAGNESIUM
     Dosage: 20 MG, 1X/DAY
     Route: 048
     Dates: start: 20140206
  23. LAC?B [Concomitant]
     Active Substance: BIFIDOBACTERIUM SPP.
     Dosage: 1 G, 3X/DAY
     Route: 048
     Dates: start: 20150628
  24. MEPIVACAINE HYDROCHLORIDE. [Concomitant]
     Active Substance: MEPIVACAINE HYDROCHLORIDE
     Indication: TRIGEMINAL NEURALGIA
     Dosage: 2 ML, AS NEEDED
     Route: 061
     Dates: start: 20170130
  25. LAMOTRIGINE. [Concomitant]
     Active Substance: LAMOTRIGINE
     Indication: TRIGEMINAL NEURALGIA
     Dosage: 25 MG, 1X/DAY
     Route: 048
     Dates: start: 20161207
  26. MAGNESIUM OXIDE. [Concomitant]
     Active Substance: MAGNESIUM OXIDE
     Indication: CONSTIPATION
     Dosage: 330 MG, AS NEEDED
     Route: 048
  27. MONOAMMONIUM GLYCYRRHIZINATE [Concomitant]
     Active Substance: AMMONIUM GLYCYRRHIZATE
     Indication: ASPARTATE AMINOTRANSFERASE INCREASED
     Dosage: 1 DF, 3X/DAY
     Route: 048
     Dates: start: 20131219, end: 20180427
  28. SODIUM HYALURONATE [Concomitant]
     Active Substance: HYALURONATE SODIUM
     Indication: GLAUCOMA
     Dosage: AT PROPER QUANTITY INSTILLATION , 3X/DAY
     Route: 041
     Dates: start: 20131220
  29. CHLORDIAZEPOXIDE. [Concomitant]
     Active Substance: CHLORDIAZEPOXIDE
     Indication: CHRONIC GASTRITIS
     Dosage: 1 G, 3X/DAY
     Route: 048
  30. LAC?B [Concomitant]
     Active Substance: BIFIDOBACTERIUM SPP.
     Indication: PROPHYLAXIS
     Dosage: 1 G, AS NEEDED
     Route: 048
     Dates: start: 20150610, end: 20150624
  31. CLOBETASOL PROPIONATE. [Concomitant]
     Active Substance: CLOBETASOL PROPIONATE
     Dosage: UNK, AS NEEDED
     Route: 061
     Dates: start: 20150914
  32. CELECOXIB. [Concomitant]
     Active Substance: CELECOXIB
     Indication: BACK PAIN
     Dosage: 100 MG, AS NEEDED
     Route: 048
     Dates: start: 20170910
  33. ESFLURBIPROFEN W/MENTHA SPP. OIL [Concomitant]
     Indication: ARTHRALGIA
     Dosage: 40 MG, AS NEEDED
     Route: 061
     Dates: start: 20180227, end: 20180425
  34. CRIZOTINIB [Suspect]
     Active Substance: CRIZOTINIB
     Dosage: UNK
     Dates: start: 20140819, end: 20160808
  35. MONOAMMONIUM GLYCYRRHIZINATE [Concomitant]
     Active Substance: AMMONIUM GLYCYRRHIZATE
     Indication: GAMMA-GLUTAMYLTRANSFERASE INCREASED
  36. SENNOSIDE /00571901/ [Concomitant]
     Active Substance: SENNOSIDES A AND B
     Indication: CONSTIPATION
     Dosage: 24 MG, AS NEEDED
     Route: 048
  37. SPIRONOLACTONE. [Concomitant]
     Active Substance: SPIRONOLACTONE
     Indication: OEDEMA PERIPHERAL
     Dosage: 25 MG, 1X/DAY
     Route: 048
     Dates: start: 20180403, end: 20180523

REACTIONS (1)
  - Rapidly progressive osteoarthritis [Recovered/Resolved]

NARRATIVE: CASE EVENT DATE: 20180409
